FAERS Safety Report 24389105 (Version 1)
Quarter: 2024Q4

REPORT INFORMATION
  Report Type: Spontaneous
  Country: AT (occurrence: AT)
  Receive Date: 20241002
  Receipt Date: 20241002
  Transmission Date: 20250115
  Serious: Yes (Death, Other)
  Sender: JOHNSON AND JOHNSON
  Company Number: AT-JNJFOC-20240972689

PATIENT
  Age: 64 Year
  Sex: Female

DRUGS (1)
  1. TALVEY [Suspect]
     Active Substance: TALQUETAMAB-TGVS
     Indication: Product used for unknown indication
     Route: 065
     Dates: start: 20231009

REACTIONS (4)
  - Soft tissue disorder [Fatal]
  - Cytokine release syndrome [Unknown]
  - Thrombocytopenia [Unknown]
  - Skin exfoliation [Unknown]
